FAERS Safety Report 24142840 (Version 1)
Quarter: 2024Q3

REPORT INFORMATION
  Report Type: Spontaneous
  Country: US (occurrence: US)
  Receive Date: 20240726
  Receipt Date: 20240726
  Transmission Date: 20241016
  Serious: Yes (Other)
  Sender: JOHNSON AND JOHNSON
  Company Number: US-JNJFOC-20240746078

PATIENT
  Sex: Male

DRUGS (1)
  1. CARVYKTI [Suspect]
     Active Substance: CILTACABTAGENE AUTOLEUCEL
     Indication: Plasma cell myeloma
     Route: 065

REACTIONS (6)
  - Hepatic failure [Unknown]
  - Large intestine perforation [Unknown]
  - Haemophagocytic lymphohistiocytosis [Unknown]
  - Colitis [Unknown]
  - Cytopenia [Unknown]
  - Hepatitis [Unknown]
